FAERS Safety Report 7288501-2 (Version None)
Quarter: 2011Q1

REPORT INFORMATION
  Report Type: 
  Country: None (occurrence: None)
  Receive Date: 20110211
  Receipt Date: 20110201
  Transmission Date: 20110831
  Serious: Yes (Death, Other)
  Sender: FDA-Public Use
  Company Number: US-PURDUE-USA-2011-0062156

PATIENT
  Age: 53 Year
  Sex: Male
  Weight: 80.726 kg

DRUGS (2)
  1. OXYCONTIN [Suspect]
     Indication: DRUG ABUSE
  2. BENZODIAZEPINE DERIVATIVES [Suspect]
     Indication: PRODUCT USED FOR UNKNOWN INDICATION

REACTIONS (2)
  - HEART INJURY [None]
  - COMPLETED SUICIDE [None]
